FAERS Safety Report 14760498 (Version 3)
Quarter: 2019Q2

REPORT INFORMATION
  Report Type: Report from Study
  Country: JP (occurrence: JP)
  Receive Date: 20180414
  Receipt Date: 20190414
  Transmission Date: 20190711
  Serious: No
  Sender: FDA-Public Use
  Company Number: JP-AMGEN-JPNCT2017081694

PATIENT
  Sex: Male
  Weight: 75.8 kg

DRUGS (10)
  1. OXALIPLATIN. [Concomitant]
     Active Substance: OXALIPLATIN
     Indication: RECTAL CANCER
     Dosage: 160 MG, Q2WEEKS
     Route: 041
     Dates: start: 20170216, end: 20170608
  2. 5-FU [FLUOROURACIL] [Concomitant]
     Active Substance: FLUOROURACIL
     Dosage: 4550 MG, Q2WEEKS
     Route: 041
     Dates: start: 20170216, end: 20170608
  3. CALCIUM LEVOFOLINATE [Concomitant]
     Active Substance: LEVOLEUCOVORIN CALCIUM
     Indication: RECTAL CANCER
     Dosage: 375 MG, Q2WEEKS
     Route: 041
     Dates: start: 20170216, end: 20170608
  4. PANITUMUMAB [Suspect]
     Active Substance: PANITUMUMAB
     Dosage: UNK
     Route: 041
     Dates: start: 20171005, end: 20180616
  5. 5-FU [FLUOROURACIL] [Concomitant]
     Active Substance: FLUOROURACIL
     Dosage: UNK
     Route: 040
     Dates: start: 20180719
  6. PANITUMUMAB [Suspect]
     Active Substance: PANITUMUMAB
     Indication: RECTAL CANCER
     Dosage: 450 MG, Q2WK
     Route: 041
     Dates: start: 20170216, end: 20170608
  7. 5-FU [FLUOROURACIL] [Concomitant]
     Active Substance: FLUOROURACIL
     Indication: RECTAL CANCER
     Dosage: 750 MG, Q2WEEKS
     Route: 040
     Dates: start: 20170216, end: 20170608
  8. 5-FU [FLUOROURACIL] [Concomitant]
     Active Substance: FLUOROURACIL
     Dosage: UNK
     Route: 040
     Dates: start: 20171005, end: 20180616
  9. 5-FU [FLUOROURACIL] [Concomitant]
     Active Substance: FLUOROURACIL
     Dosage: UNK
     Route: 041
     Dates: start: 20180719
  10. 5-FU [FLUOROURACIL] [Concomitant]
     Active Substance: FLUOROURACIL
     Dosage: UNK
     Route: 041
     Dates: start: 20171005, end: 20180616

REACTIONS (10)
  - Lung disorder [Recovered/Resolved]
  - Dermatitis acneiform [Not Recovered/Not Resolved]
  - Pigmentation disorder [Not Recovered/Not Resolved]
  - Hypomagnesaemia [Recovered/Resolved]
  - Peripheral sensory neuropathy [Not Recovered/Not Resolved]
  - Dysgeusia [Recovering/Resolving]
  - Fatigue [Recovered/Resolved]
  - Alopecia [Not Recovered/Not Resolved]
  - Nausea [Recovered/Resolved]
  - Paronychia [Recovered/Resolved]
